FAERS Safety Report 23307759 (Version 3)
Quarter: 2024Q1

REPORT INFORMATION
  Report Type: Spontaneous
  Country: CO (occurrence: CO)
  Receive Date: 20231218
  Receipt Date: 20240313
  Transmission Date: 20240409
  Serious: Yes (Other)
  Sender: FDA-Public Use
  Company Number: CO-GLAXOSMITHKLINE-CO2023AMR174552

PATIENT

DRUGS (1)
  1. MEPOLIZUMAB [Suspect]
     Active Substance: MEPOLIZUMAB
     Indication: Asthma
     Dosage: 100 MG, MO
     Route: 042
     Dates: start: 20230604

REACTIONS (6)
  - Brain neoplasm [Not Recovered/Not Resolved]
  - Seizure [Not Recovered/Not Resolved]
  - Brain operation [Unknown]
  - Road traffic accident [Not Recovered/Not Resolved]
  - Amnesia [Not Recovered/Not Resolved]
  - Ill-defined disorder [Not Recovered/Not Resolved]
